FAERS Safety Report 13271109 (Version 2)
Quarter: 2017Q1

REPORT INFORMATION
  Report Type: Spontaneous
  Country: JP (occurrence: JP)
  Receive Date: 20170226
  Receipt Date: 20170310
  Transmission Date: 20170428
  Serious: Yes (Death)
  Sender: FDA-Public Use
  Company Number: JP-AMGEN-JPNSP2017029923

PATIENT
  Sex: Male

DRUGS (1)
  1. G-LASTA [Suspect]
     Active Substance: PEGFILGRASTIM
     Indication: NEUTROPENIA
     Dosage: 3.6 MG, UNK
     Route: 058

REACTIONS (7)
  - Blood uric acid increased [Fatal]
  - Therapeutic procedure [Unknown]
  - Neutrophil count increased [Fatal]
  - Liver disorder [Fatal]
  - Death [Fatal]
  - Off label use [Unknown]
  - Renal disorder [Fatal]

NARRATIVE: CASE EVENT DATE: 2017
